FAERS Safety Report 7733763-8 (Version None)
Quarter: 2011Q3

REPORT INFORMATION
  Report Type: 
  Country: None (occurrence: None)
  Receive Date: 20110907
  Receipt Date: 20110829
  Transmission Date: 20111222
  Serious: Yes (Other)
  Sender: FDA-Public Use
  Company Number: PHHY2011JP77804

PATIENT

DRUGS (1)
  1. CARBAMAZEPINE [Suspect]
     Indication: TRIGEMINAL NEURALGIA
     Dosage: UNK UKN, UNK

REACTIONS (1)
  - ROAD TRAFFIC ACCIDENT [None]
